FAERS Safety Report 8415698-0 (Version None)
Quarter: 2012Q2

REPORT INFORMATION
  Report Type: 
  Country: None (occurrence: None)
  Receive Date: 20120323
  Receipt Date: 20110329
  Transmission Date: 20120825
  Serious: Yes (Hospitalization, Disabling)
  Sender: FDA-Public Use
  Company Number: 163-21880-11022023

PATIENT
  Age: 69 Year
  Sex: Female

DRUGS (16)
  1. PREDNISONE TAB [Concomitant]
  2. GABAPENTIN [Concomitant]
  3. VITAMIN B (VITAMIN B) [Concomitant]
  4. SERTRALINE HYDROCHLORIDE [Concomitant]
  5. OMEPRAZOLE [Concomitant]
  6. VITAMIN  E (TOOCPHEROL) [Concomitant]
  7. ZOLPIDEM [Concomitant]
  8. DIAZEPAM [Concomitant]
  9. CALCIUM CARBONATE [Concomitant]
  10. MULTIVITAMIN [Concomitant]
  11. REVLIMID [Suspect]
     Indication: MYELOFIBROSIS
     Dosage: 5 MG, 1 IN 1 D, PO ; 10 MG, Q 21, PO
     Route: 048
     Dates: start: 20101201
  12. REVLIMID [Suspect]
     Indication: MULTIPLE MYELOMA
     Dosage: 5 MG, 1 IN 1 D, PO ; 10 MG, Q 21, PO
     Route: 048
     Dates: start: 20101201
  13. REVLIMID [Suspect]
     Indication: MYELOFIBROSIS
     Dosage: 5 MG, 1 IN 1 D, PO ; 10 MG, Q 21, PO
     Route: 048
     Dates: start: 20101018
  14. REVLIMID [Suspect]
     Indication: MULTIPLE MYELOMA
     Dosage: 5 MG, 1 IN 1 D, PO ; 10 MG, Q 21, PO
     Route: 048
     Dates: start: 20101018
  15. IMODIUM [Concomitant]
  16. FEXOFENADINE HCL [Concomitant]

REACTIONS (4)
  - FATIGUE [None]
  - FULL BLOOD COUNT DECREASED [None]
  - NECK PAIN [None]
  - MUSCULOSKELETAL PAIN [None]
